FAERS Safety Report 4822844-4 (Version None)
Quarter: 2005Q4

REPORT INFORMATION
  Report Type: 
  Country: None (occurrence: None)
  Receive Date: 20051104
  Receipt Date: 20051024
  Transmission Date: 20060501
  Serious: Yes (Other)
  Sender: FDA-Public Use
  Company Number: 2005146805

PATIENT
  Sex: Female
  Weight: 85.7298 kg

DRUGS (16)
  1. NEURONTIN [Suspect]
     Indication: CONVULSION
     Dosage: (3 IN 1 D), ORAL
     Route: 048
  2. LYRICA [Suspect]
     Indication: CONVULSION
     Dosage: 150 MG (75 MG, 2 IN 1 D), ORAL
     Route: 048
     Dates: start: 20051001
  3. LYRICA [Suspect]
     Indication: GLOSSOPHARYNGEAL NEURALGIA
     Dosage: 150 MG (75 MG, 2 IN 1 D), ORAL
     Route: 048
     Dates: start: 20051001
  4. LYRICA [Suspect]
     Indication: TRIGEMINAL NEURALGIA
     Dosage: 150 MG (75 MG, 2 IN 1 D), ORAL
     Route: 048
     Dates: start: 20051001
  5. GABAPENTIN [Suspect]
     Indication: CONVULSION
     Dosage: (3 IN 1 D), ORAL
     Route: 048
  6. COZAAR [Concomitant]
  7. ZETIA [Concomitant]
  8. PREVACID [Concomitant]
  9. CLONIDINE [Concomitant]
  10. HYDROCHLOROTHIAZIDE [Concomitant]
  11. POLYETHYLENE GLYCOL (POLYETHYLENE GLYCOL) [Concomitant]
  12. ALBUTEROL [Concomitant]
  13. SPIRIVA [Concomitant]
  14. CYANOCOBALAMIN [Concomitant]
  15. ZANAFLEX [Concomitant]
  16. PERCOCET [Concomitant]

REACTIONS (6)
  - BACK DISORDER [None]
  - DRUG INEFFECTIVE [None]
  - FATIGUE [None]
  - GLOSSOPHARYNGEAL NEURALGIA [None]
  - SPINAL FUSION SURGERY [None]
  - TRIGEMINAL NEURALGIA [None]
